FAERS Safety Report 14729039 (Version 1)
Quarter: 2018Q2

REPORT INFORMATION
  Report Type: Spontaneous
  Country: US (occurrence: US)
  Receive Date: 20180402
  Receipt Date: 20180402
  Transmission Date: 20180711
  Serious: No
  Sender: FDA-Public Use
  Company Number: None

PATIENT
  Age: 65 Year
  Sex: Female
  Weight: 93.15 kg

DRUGS (7)
  1. ASPIRIN. [Concomitant]
     Active Substance: ASPIRIN
  2. MECLIZINE [Concomitant]
     Active Substance: MECLIZINE HYDROCHLORIDE
  3. HYDROCHLOROTHIAZIDE. [Concomitant]
     Active Substance: HYDROCHLOROTHIAZIDE
  4. MOBIC [Concomitant]
     Active Substance: MELOXICAM
  5. IBRANCE [Suspect]
     Active Substance: PALBOCICLIB
     Indication: BREAST CANCER
     Route: 048
     Dates: start: 20170724
  6. NORVASC [Concomitant]
     Active Substance: AMLODIPINE BESYLATE
  7. ALLOPURINOL. [Concomitant]
     Active Substance: ALLOPURINOL

REACTIONS (2)
  - Nasal polyps [None]
  - Epistaxis [None]

NARRATIVE: CASE EVENT DATE: 20180402
